FAERS Safety Report 26082729 (Version 1)
Quarter: 2025Q4

REPORT INFORMATION
  Report Type: Spontaneous
  Country: EU (occurrence: EU)
  Receive Date: 20251124
  Receipt Date: 20251124
  Transmission Date: 20260118
  Serious: Yes (Hospitalization)
  Sender: MYLAN
  Company Number: None

PATIENT
  Age: 76 Year
  Sex: Female
  Weight: 58 kg

DRUGS (40)
  1. PACLITAXEL [Suspect]
     Active Substance: PACLITAXEL
     Indication: Ovarian cancer metastatic
     Dosage: 1 DOSAGE FORM, CYCLE, 6 COURSE
     Route: 042
     Dates: start: 201303, end: 201309
  2. PACLITAXEL [Suspect]
     Active Substance: PACLITAXEL
     Dosage: 1 DOSAGE FORM, CYCLE, 6 COURSE
     Dates: start: 201303, end: 201309
  3. PACLITAXEL [Suspect]
     Active Substance: PACLITAXEL
     Dosage: 1 DOSAGE FORM, CYCLE, 6 COURSE
     Dates: start: 201303, end: 201309
  4. PACLITAXEL [Suspect]
     Active Substance: PACLITAXEL
     Dosage: 1 DOSAGE FORM, CYCLE, 6 COURSE
     Route: 042
     Dates: start: 201303, end: 201309
  5. PACLITAXEL [Suspect]
     Active Substance: PACLITAXEL
     Dosage: 1 DOSAGE FORM, QW, 7 COURSES
     Route: 042
     Dates: start: 202410, end: 20250403
  6. PACLITAXEL [Suspect]
     Active Substance: PACLITAXEL
     Dosage: 1 DOSAGE FORM, QW, 7 COURSES
     Dates: start: 202410, end: 20250403
  7. PACLITAXEL [Suspect]
     Active Substance: PACLITAXEL
     Dosage: 1 DOSAGE FORM, QW, 7 COURSES
     Dates: start: 202410, end: 20250403
  8. PACLITAXEL [Suspect]
     Active Substance: PACLITAXEL
     Dosage: 1 DOSAGE FORM, QW, 7 COURSES
     Route: 042
     Dates: start: 202410, end: 20250403
  9. CARBOPLATIN [Suspect]
     Active Substance: CARBOPLATIN
     Indication: Ovarian cancer metastatic
     Dosage: 1 DOSAGE FORM, CYCLE, 6 COURSES
     Route: 042
     Dates: start: 201303, end: 201309
  10. CARBOPLATIN [Suspect]
     Active Substance: CARBOPLATIN
     Dosage: 1 DOSAGE FORM, CYCLE, 6 COURSES
     Dates: start: 201303, end: 201309
  11. CARBOPLATIN [Suspect]
     Active Substance: CARBOPLATIN
     Dosage: 1 DOSAGE FORM, CYCLE, 6 COURSES
     Dates: start: 201303, end: 201309
  12. CARBOPLATIN [Suspect]
     Active Substance: CARBOPLATIN
     Dosage: 1 DOSAGE FORM, CYCLE, 6 COURSES
     Route: 042
     Dates: start: 201303, end: 201309
  13. CARBOPLATIN [Suspect]
     Active Substance: CARBOPLATIN
     Dosage: 1 DOSAGE FORM, CYCLE, 6 COURSES
     Dates: start: 201811, end: 201904
  14. CARBOPLATIN [Suspect]
     Active Substance: CARBOPLATIN
     Dosage: 1 DOSAGE FORM, CYCLE, 6 COURSES
     Dates: start: 201811, end: 201904
  15. CARBOPLATIN [Suspect]
     Active Substance: CARBOPLATIN
     Dosage: 1 DOSAGE FORM, CYCLE, 6 COURSES
     Route: 042
     Dates: start: 201811, end: 201904
  16. CARBOPLATIN [Suspect]
     Active Substance: CARBOPLATIN
     Dosage: 1 DOSAGE FORM, CYCLE, 6 COURSES
     Route: 042
     Dates: start: 201811, end: 201904
  17. CARBOPLATIN [Suspect]
     Active Substance: CARBOPLATIN
     Dosage: 1 DOSAGE FORM, CYCLE, 2 COURSES
     Route: 042
     Dates: start: 202312, end: 202401
  18. CARBOPLATIN [Suspect]
     Active Substance: CARBOPLATIN
     Dosage: 1 DOSAGE FORM, CYCLE, 2 COURSES
     Dates: start: 202312, end: 202401
  19. CARBOPLATIN [Suspect]
     Active Substance: CARBOPLATIN
     Dosage: 1 DOSAGE FORM, CYCLE, 2 COURSES
     Dates: start: 202312, end: 202401
  20. CARBOPLATIN [Suspect]
     Active Substance: CARBOPLATIN
     Dosage: 1 DOSAGE FORM, CYCLE, 2 COURSES
     Route: 042
     Dates: start: 202312, end: 202401
  21. DOXORUBICIN HYDROCHLORIDE [Suspect]
     Active Substance: DOXORUBICIN HYDROCHLORIDE
     Indication: Ovarian cancer metastatic
     Dosage: 1 DOSAGE FORM, CYCLE, 6 COURSE
     Dates: start: 201811, end: 201904
  22. DOXORUBICIN HYDROCHLORIDE [Suspect]
     Active Substance: DOXORUBICIN HYDROCHLORIDE
     Dosage: 1 DOSAGE FORM, CYCLE, 6 COURSE
     Route: 042
     Dates: start: 201811, end: 201904
  23. DOXORUBICIN HYDROCHLORIDE [Suspect]
     Active Substance: DOXORUBICIN HYDROCHLORIDE
     Dosage: 1 DOSAGE FORM, CYCLE, 6 COURSE
     Route: 042
     Dates: start: 201811, end: 201904
  24. DOXORUBICIN HYDROCHLORIDE [Suspect]
     Active Substance: DOXORUBICIN HYDROCHLORIDE
     Dosage: 1 DOSAGE FORM, CYCLE, 6 COURSE
     Dates: start: 201811, end: 201904
  25. ZEJULA [Suspect]
     Active Substance: NIRAPARIB
     Indication: Ovarian cancer metastatic
     Dosage: 300 MILLIGRAM, QD
     Dates: start: 201909, end: 202103
  26. ZEJULA [Suspect]
     Active Substance: NIRAPARIB
     Dosage: 300 MILLIGRAM, QD
     Dates: start: 201909, end: 202103
  27. ZEJULA [Suspect]
     Active Substance: NIRAPARIB
     Dosage: 300 MILLIGRAM, QD
     Route: 048
     Dates: start: 201909, end: 202103
  28. ZEJULA [Suspect]
     Active Substance: NIRAPARIB
     Dosage: 300 MILLIGRAM, QD
     Route: 048
     Dates: start: 201909, end: 202103
  29. ZEJULA [Suspect]
     Active Substance: NIRAPARIB
     Dosage: 200 MILLIGRAM, QD
     Dates: start: 202103, end: 202207
  30. ZEJULA [Suspect]
     Active Substance: NIRAPARIB
     Dosage: 200 MILLIGRAM, QD
     Dates: start: 202103, end: 202207
  31. ZEJULA [Suspect]
     Active Substance: NIRAPARIB
     Dosage: 200 MILLIGRAM, QD
     Route: 048
     Dates: start: 202103, end: 202207
  32. ZEJULA [Suspect]
     Active Substance: NIRAPARIB
     Dosage: 200 MILLIGRAM, QD
     Route: 048
     Dates: start: 202103, end: 202207
  33. RUBRACA [Suspect]
     Active Substance: RUCAPARIB CAMSYLATE
     Indication: Ovarian cancer metastatic
     Dosage: 500 MILLIGRAM, QD
     Dates: start: 202207, end: 202312
  34. RUBRACA [Suspect]
     Active Substance: RUCAPARIB CAMSYLATE
     Dosage: 500 MILLIGRAM, QD
     Route: 065
     Dates: start: 202207, end: 202312
  35. RUBRACA [Suspect]
     Active Substance: RUCAPARIB CAMSYLATE
     Dosage: 500 MILLIGRAM, QD
     Route: 065
     Dates: start: 202207, end: 202312
  36. RUBRACA [Suspect]
     Active Substance: RUCAPARIB CAMSYLATE
     Dosage: 500 MILLIGRAM, QD
     Dates: start: 202207, end: 202312
  37. GEMCITABINE [Suspect]
     Active Substance: GEMCITABINE
     Indication: Ovarian cancer metastatic
     Dosage: 1 DOSAGE FORM, CYCLE, 2 COURSE
     Dates: start: 202312, end: 202401
  38. GEMCITABINE [Suspect]
     Active Substance: GEMCITABINE
     Dosage: 1 DOSAGE FORM, CYCLE, 2 COURSE
     Route: 048
     Dates: start: 202312, end: 202401
  39. GEMCITABINE [Suspect]
     Active Substance: GEMCITABINE
     Dosage: 1 DOSAGE FORM, CYCLE, 2 COURSE
     Route: 048
     Dates: start: 202312, end: 202401
  40. GEMCITABINE [Suspect]
     Active Substance: GEMCITABINE
     Dosage: 1 DOSAGE FORM, CYCLE, 2 COURSE
     Dates: start: 202312, end: 202401

REACTIONS (1)
  - Myelodysplastic syndrome [Not Recovered/Not Resolved]

NARRATIVE: CASE EVENT DATE: 20250613
